FAERS Safety Report 18549735 (Version 1)
Quarter: 2020Q4

REPORT INFORMATION
  Report Type: Spontaneous
  Country: US (occurrence: US)
  Receive Date: 20201126
  Receipt Date: 20201126
  Transmission Date: 20210114
  Serious: Yes (Hospitalization)
  Sender: FDA-Public Use
  Company Number: US-TEVA-2020-US-1852576

PATIENT
  Age: 37 Year
  Sex: Female
  Weight: 107 kg

DRUGS (13)
  1. SODIUM CHLORIDE. [Concomitant]
     Active Substance: SODIUM CHLORIDE
     Dates: start: 20181202
  2. VALACICLOVIR [Concomitant]
     Active Substance: VALACYCLOVIR HYDROCHLORIDE
     Dates: start: 20181120
  3. AVE LOX [Concomitant]
     Dates: start: 20181202
  4. RELPAX [Concomitant]
     Active Substance: ELETRIPTAN HYDROBROMIDE
  5. LUPRON [Concomitant]
     Active Substance: LEUPROLIDE ACETATE
     Dates: start: 20181130
  6. ASP2215 [Suspect]
     Active Substance: GILTERITINIB
     Indication: ACUTE MYELOID LEUKAEMIA
     Route: 048
     Dates: start: 20181129, end: 20181210
  7. DAUNORUBICIN [Suspect]
     Active Substance: DAUNORUBICIN
     Indication: ACUTE MYELOID LEUKAEMIA
     Route: 042
     Dates: start: 20181003, end: 20181005
  8. AMOXIL [Concomitant]
     Active Substance: AMOXICILLIN
     Dates: start: 20181202
  9. CYTARABINE. [Suspect]
     Active Substance: CYTARABINE
     Indication: ACUTE MYELOID LEUKAEMIA
     Route: 042
     Dates: start: 20181003, end: 20181010
  10. KEPPRA [Concomitant]
     Active Substance: LEVETIRACETAM
     Dates: start: 20160502
  11. ATIVAN [Concomitant]
     Active Substance: LORAZEPAM
     Dates: start: 20181217
  12. NOXAFIL [Concomitant]
     Active Substance: POSACONAZOLE
     Dates: start: 20181204
  13. HEPARIN FLUSH [Concomitant]
     Active Substance: HEPARIN SODIUM
     Dates: start: 20181113

REACTIONS (3)
  - Dyspepsia [Recovered/Resolved]
  - Hypotension [Recovering/Resolving]
  - Febrile neutropenia [Recovered/Resolved]

NARRATIVE: CASE EVENT DATE: 20181221
